FAERS Safety Report 23971002 (Version 2)
Quarter: 2025Q2

REPORT INFORMATION
  Report Type: Spontaneous
  Country: SE (occurrence: SE)
  Receive Date: 20240613
  Receipt Date: 20250411
  Transmission Date: 20250716
  Serious: Yes (Death, Life-Threatening, Other)
  Sender: PHARMACOSMOS
  Company Number: None

PATIENT
  Sex: Male

DRUGS (5)
  1. ESCITALOPRAM OXALATE [Concomitant]
     Active Substance: ESCITALOPRAM OXALATE
  2. Sumatriptan Apofri [Concomitant]
  3. IRON ISOMALTOSIDE 1000 [Suspect]
     Active Substance: IRON ISOMALTOSIDE 1000
     Indication: Iron deficiency anaemia
     Dates: start: 20240522, end: 20240522
  4. IRON ISOMALTOSIDE 1000 [Suspect]
     Active Substance: IRON ISOMALTOSIDE 1000
     Indication: Iron deficiency anaemia
     Dates: start: 20240522, end: 20240522
  5. IRON ISOMALTOSIDE 1000 [Suspect]
     Active Substance: IRON ISOMALTOSIDE 1000
     Indication: Iron deficiency anaemia
     Dates: start: 20240522, end: 20240522

REACTIONS (8)
  - Respiratory tract inflammation [Fatal]
  - Foetal exposure during pregnancy [Recovering/Resolving]
  - Cerebral ischaemia [Fatal]
  - Premature baby [Recovered/Resolved]
  - Tachycardia foetal [Recovering/Resolving]
  - Laryngitis [Fatal]
  - Pulmonary haemorrhage [Fatal]
  - Brain injury [Fatal]

NARRATIVE: CASE EVENT DATE: 20240501
